FAERS Safety Report 5020913-X (Version None)
Quarter: 2006Q2

REPORT INFORMATION
  Report Type: 
  Country: None (occurrence: None)
  Receive Date: 20060414
  Receipt Date: 20050314
  Transmission Date: 20061013
  Serious: No
  Sender: FDA-Public Use
  Company Number: US-JNJFOC-20050205562

PATIENT
  Age: 34 Year
  Sex: Female

DRUGS (2)
  1. ULTRAM [Suspect]
     Indication: ABDOMINAL PAIN
  2. BLOOD PRESSURE (ANTIHYPERTENSIVES) PATCH [Concomitant]

REACTIONS (1)
  - DRUG SCREEN POSITIVE [None]
